FAERS Safety Report 23643940 (Version 1)
Quarter: 2024Q1

REPORT INFORMATION
  Report Type: Spontaneous
  Country: US (occurrence: None)
  Receive Date: 20240317
  Receipt Date: 20240317
  Transmission Date: 20240410
  Serious: Yes (Other)
  Sender: FDA-Public Use
  Company Number: None

PATIENT
  Age: 47 Year
  Sex: Female
  Weight: 96.75 kg

DRUGS (2)
  1. ELINEST [Suspect]
     Active Substance: ETHINYL ESTRADIOL\NORGESTREL
     Indication: Vaginal haemorrhage
  2. LOSARTAN [Concomitant]
     Active Substance: LOSARTAN

REACTIONS (5)
  - Dyspnoea [None]
  - Lung abscess [None]
  - Dyspnoea [None]
  - Anxiety [None]
  - Insomnia [None]

NARRATIVE: CASE EVENT DATE: 20240310
